FAERS Safety Report 25425173 (Version 2)
Quarter: 2025Q2

REPORT INFORMATION
  Report Type: Report from Study
  Country: US (occurrence: US)
  Receive Date: 20250611
  Receipt Date: 20250622
  Transmission Date: 20250717
  Serious: Yes (Hospitalization)
  Sender: ABBVIE
  Company Number: US-ABBVIE-6319484

PATIENT
  Age: 53 Year
  Sex: Female

DRUGS (1)
  1. HUMIRA [Suspect]
     Active Substance: ADALIMUMAB
     Indication: Product used for unknown indication
     Route: 058
     Dates: start: 2005

REACTIONS (9)
  - Loss of consciousness [Recovering/Resolving]
  - Victim of sexual abuse [Unknown]
  - Product storage error [Unknown]
  - Road traffic accident [Unknown]
  - Multiple fractures [Unknown]
  - Speech disorder [Unknown]
  - Anxiety [Unknown]
  - Depression [Unknown]
  - Bipolar disorder [Unknown]

NARRATIVE: CASE EVENT DATE: 20250430
